FAERS Safety Report 13641471 (Version 2)
Quarter: 2018Q3

REPORT INFORMATION
  Report Type: Spontaneous
  Country: ES (occurrence: ES)
  Receive Date: 20170612
  Receipt Date: 20180730
  Transmission Date: 20181010
  Serious: Yes (Other)
  Sender: FDA-Public Use
  Company Number: ES-SUN PHARMACEUTICAL INDUSTRIES LTD-2017RR-142647

PATIENT
  Age: 54 Year
  Sex: Female

DRUGS (1)
  1. LETROZOLE. [Suspect]
     Active Substance: LETROZOLE
     Indication: METASTATIC UTERINE CANCER
     Dosage: 2.5 MG, DAILY
     Route: 048

REACTIONS (1)
  - Blood bilirubin increased [Recovered/Resolved]
